FAERS Safety Report 20008670 (Version 1)
Quarter: 2021Q4

REPORT INFORMATION
  Report Type: Spontaneous
  Country: CN (occurrence: CN)
  Receive Date: 20211029
  Receipt Date: 20211029
  Transmission Date: 20220303
  Serious: Yes (Hospitalization)
  Sender: FDA-Public Use
  Company Number: CN-SA-SAC20211027001835

PATIENT
  Age: 56 Year
  Sex: Female
  Weight: 50 kg

DRUGS (1)
  1. CLOPIDOGREL BISULFATE [Suspect]
     Active Substance: CLOPIDOGREL BISULFATE
     Indication: Coronary artery disease
     Dosage: 75 MG, QD
     Route: 048
     Dates: start: 20210102, end: 20210928

REACTIONS (3)
  - Head discomfort [Recovering/Resolving]
  - Headache [Recovering/Resolving]
  - Dizziness [Recovering/Resolving]

NARRATIVE: CASE EVENT DATE: 20210928
